FAERS Safety Report 9423414 (Version 2)
Quarter: 2013Q3

REPORT INFORMATION
  Report Type: Spontaneous
  Country: US (occurrence: US)
  Receive Date: 20130726
  Receipt Date: 20130924
  Transmission Date: 20140515
  Serious: Yes (Other)
  Sender: FDA-Public Use
  Company Number: US-TEVA-420508USA

PATIENT
  Sex: Female
  Weight: 61.29 kg

DRUGS (4)
  1. VENLAFAXINE [Suspect]
     Indication: PAIN
     Dosage: 150 MILLIGRAM DAILY;
     Route: 048
     Dates: start: 2010
  2. VENLAFAXINE [Suspect]
     Indication: ANXIETY
  3. OXYCODONE [Concomitant]
  4. MS CONTIN [Concomitant]

REACTIONS (7)
  - Metal poisoning [Unknown]
  - Cognitive disorder [Unknown]
  - Adverse event [Unknown]
  - Amnesia [Unknown]
  - Memory impairment [Unknown]
  - Off label use [Unknown]
  - Pain [Unknown]
